FAERS Safety Report 9542683 (Version 3)
Quarter: 2014Q1

REPORT INFORMATION
  Report Type: Report from Study
  Country: US (occurrence: US)
  Receive Date: 20130923
  Receipt Date: 20140327
  Transmission Date: 20141002
  Serious: Yes (Other)
  Sender: FDA-Public Use
  Company Number: US-SANOFI-AVENTIS-2013SA091602

PATIENT
  Sex: Female

DRUGS (9)
  1. AUBAGIO [Suspect]
     Indication: MULTIPLE SCLEROSIS
     Route: 048
     Dates: start: 20121215
  2. AUBAGIO [Suspect]
     Indication: MULTIPLE SCLEROSIS
     Route: 048
  3. SYNTHROID [Concomitant]
  4. ALENDRONATE [Concomitant]
  5. MICROGESTIN FE 1.5/30 [Concomitant]
  6. MULTIVITAMINS [Concomitant]
  7. BACLOFEN [Concomitant]
  8. FLUOXETINE HYDROCHLORIDE [Concomitant]
  9. VITAMIN D [Concomitant]

REACTIONS (5)
  - Foot fracture [Not Recovered/Not Resolved]
  - Gait disturbance [Not Recovered/Not Resolved]
  - Pain [Unknown]
  - Impaired healing [Unknown]
  - Fall [Unknown]
